APPROVED DRUG PRODUCT: OMEGA-3-ACID ETHYL ESTERS
Active Ingredient: OMEGA-3-ACID ETHYL ESTERS
Strength: 1GM CONTAINS AT LEAST 900MG OF THE ETHYL ESTERS OF OMEGA-3 FATTY ACIDS
Dosage Form/Route: CAPSULE;ORAL
Application: A215458 | Product #001 | TE Code: AB
Applicant: MANKIND PHARMA LTD
Approved: Nov 15, 2021 | RLD: No | RS: No | Type: RX